FAERS Safety Report 7190604-8 (Version None)
Quarter: 2010Q4

REPORT INFORMATION
  Report Type: 
  Country: None (occurrence: None)
  Receive Date: 20101221
  Receipt Date: 20101221
  Transmission Date: 20110411
  Serious: Yes (Death)
  Sender: FDA-Public Use
  Company Number: None

PATIENT
  Age: 63 Year

DRUGS (3)
  1. ENOXAPARIN SODIUM [Suspect]
     Indication: LUNG NEOPLASM MALIGNANT
     Dosage: 40 SQ QD
     Route: 058
  2. ALIMTA [Suspect]
     Dosage: 900 MG IV Q 21D
     Route: 042
  3. TAXOTERE [Concomitant]

REACTIONS (1)
  - DEATH [None]
